FAERS Safety Report 7464982-6 (Version None)
Quarter: 2011Q2

REPORT INFORMATION
  Report Type: 
  Country: None (occurrence: None)
  Receive Date: 20110509
  Receipt Date: 20110427
  Transmission Date: 20111010
  Serious: Yes (Hospitalization, Other)
  Sender: FDA-Public Use
  Company Number: US-JNJFOC-20110502691

PATIENT
  Sex: Female
  Weight: 70.31 kg

DRUGS (22)
  1. FIORICET [Concomitant]
     Indication: MIGRAINE
     Dosage: 50/325/40 MG TABLET AS NEEDED
     Route: 048
  2. LISINOPRIL [Concomitant]
     Indication: HYPERTENSION
     Route: 048
  3. PHENERGAN HCL [Concomitant]
     Indication: NAUSEA
     Dosage: AS NEEDED
     Route: 048
  4. FENTANYL-100 [Suspect]
     Dosage: 2 100 MCG, NDC(0781-7204-55)
     Route: 062
  5. DURAGESIC-100 [Suspect]
     Dosage: 2 100 MCG
     Route: 062
  6. AMBIEN [Concomitant]
     Indication: SLEEP DISORDER
     Dosage: NIGHT
     Route: 048
  7. CYMBALTA [Concomitant]
     Indication: DEPRESSION
     Route: 048
  8. SYNTHROID [Concomitant]
     Indication: HYPOTHYROIDISM
     Route: 048
  9. FENTANYL-100 [Suspect]
     Indication: AUTOIMMUNE DISORDER
     Dosage: 2 100 MCG
     Route: 062
  10. ADDERALL 10 [Concomitant]
     Indication: DEPRESSION
     Route: 048
  11. DILAUDID [Concomitant]
     Indication: BREAKTHROUGH PAIN
     Route: 048
  12. DURAGESIC-100 [Suspect]
     Indication: AUTOIMMUNE DISORDER
     Dosage: 2 100 UG/HOUR PATCHES
     Route: 062
  13. DURAGESIC-100 [Suspect]
     Dosage: 2 100 MCG
     Route: 062
  14. SULINDAC [Concomitant]
     Indication: INFLAMMATION
     Route: 048
  15. DURAGESIC-100 [Suspect]
     Indication: SYSTEMIC LUPUS ERYTHEMATOSUS
     Dosage: 2 100 UG/HOUR PATCHES
     Route: 062
  16. ATIVAN [Concomitant]
     Indication: ANXIETY
     Dosage: AS NEEDED
  17. CYMBALTA [Concomitant]
     Indication: VISUAL IMPAIRMENT
     Route: 048
  18. ELAVIL [Concomitant]
     Indication: ELEVATED MOOD
     Route: 048
  19. PRILOSEC [Concomitant]
     Indication: GASTROOESOPHAGEAL REFLUX DISEASE
     Route: 048
  20. PLAQUENIL [Concomitant]
     Indication: SYSTEMIC LUPUS ERYTHEMATOSUS
     Route: 048
  21. FENTANYL-100 [Suspect]
     Indication: SYSTEMIC LUPUS ERYTHEMATOSUS
     Dosage: 2 100 MCG
     Route: 062
  22. FENTANYL-100 [Suspect]
     Dosage: 2 100 MCG, NDC(0781-7204-55)
     Route: 062

REACTIONS (9)
  - CELLULITIS [None]
  - BLINDNESS [None]
  - CHILLS [None]
  - SUICIDAL IDEATION [None]
  - IMPLANT SITE REACTION [None]
  - POSTURE ABNORMAL [None]
  - BONE PAIN [None]
  - TEMPERATURE REGULATION DISORDER [None]
  - INADEQUATE ANALGESIA [None]
